FAERS Safety Report 16065527 (Version 3)
Quarter: 2019Q1

REPORT INFORMATION
  Report Type: Spontaneous
  Country: KR (occurrence: KR)
  Receive Date: 20190313
  Receipt Date: 20190325
  Transmission Date: 20190418
  Serious: Yes (Other)
  Sender: FDA-Public Use
  Company Number: KR-009507513-1901KOR002518

PATIENT
  Sex: Female

DRUGS (7)
  1. KEYTRUDA [Suspect]
     Active Substance: PEMBROLIZUMAB
     Dosage: REPORTED AS QUANTITY:1; DAYS 1
     Dates: start: 20190117
  2. KEYTRUDA [Suspect]
     Active Substance: PEMBROLIZUMAB
     Dosage: UNK, REPORETED AS QUANTITY 2 AND DAYS 1
     Dates: start: 20190308
  3. KEYTRUDA [Suspect]
     Active Substance: PEMBROLIZUMAB
     Dosage: REPORTED AS QUANTITY:2; DAYS 1
     Dates: start: 20181225
  4. KEYTRUDA [Suspect]
     Active Substance: PEMBROLIZUMAB
     Dosage: REPORTED AS QUANTITY:2; DAYS 1
     Dates: start: 20190212
  5. KEYTRUDA [Suspect]
     Active Substance: PEMBROLIZUMAB
     Indication: CYSTITIS
     Dosage: UNK
     Dates: start: 20181109
  6. KEYTRUDA [Suspect]
     Active Substance: PEMBROLIZUMAB
     Indication: OVARIAN EPITHELIAL CANCER STAGE IV
     Dosage: UNK
     Dates: start: 20181019
  7. KEYTRUDA [Suspect]
     Active Substance: PEMBROLIZUMAB
     Dosage: 3 RD TREATMENT
     Dates: start: 20181130

REACTIONS (3)
  - Adverse event [Unknown]
  - Product use in unapproved indication [Unknown]
  - Ureteral stent insertion [Unknown]

NARRATIVE: CASE EVENT DATE: 20181019
